FAERS Safety Report 24731870 (Version 2)
Quarter: 2025Q3

REPORT INFORMATION
  Report Type: Report from Study
  Country: US (occurrence: US)
  Receive Date: 20241213
  Receipt Date: 20250809
  Transmission Date: 20251021
  Serious: Yes (Hospitalization, Other)
  Sender: ALEXION PHARMACEUTICALS
  Company Number: US-AstraZeneca-CH-00763087A

PATIENT
  Sex: Female

DRUGS (1)
  1. EXENATIDE [Suspect]
     Active Substance: EXENATIDE
     Route: 065

REACTIONS (2)
  - Septic shock [Unknown]
  - Deafness [Unknown]
